FAERS Safety Report 7833640-8 (Version None)
Quarter: 2011Q4

REPORT INFORMATION
  Report Type: 
  Country: None (occurrence: None)
  Receive Date: 20111024
  Receipt Date: 20111011
  Transmission Date: 20120403
  Serious: Yes (Life-Threatening, Hospitalization, Other)
  Sender: FDA-Public Use
  Company Number: ES-SANOFI-AVENTIS-2011SA038069

PATIENT
  Age: 75 Year
  Sex: Male
  Weight: 80 kg

DRUGS (12)
  1. AMIODARONE HCL [Concomitant]
  2. ALLOPURINOL [Concomitant]
     Route: 048
     Dates: start: 19990101
  3. SINTROM [Concomitant]
     Route: 048
     Dates: start: 19990101
  4. ATENOLOL [Concomitant]
     Route: 048
     Dates: start: 20110130
  5. MULTAQ [Suspect]
     Indication: ATRIAL FIBRILLATION
     Route: 048
     Dates: start: 20110603, end: 20110605
  6. FUROSEMIDE [Concomitant]
     Route: 048
     Dates: start: 19990101
  7. TIRODRIL [Concomitant]
  8. ATENOLOL [Concomitant]
     Route: 048
     Dates: start: 20110130
  9. RADIOACTIVE IODINE SOLUTION [Concomitant]
  10. ALL OTHER THERAPEUTIC PRODUCTS [Suspect]
     Route: 065
  11. FUROSEMIDE [Concomitant]
     Route: 048
     Dates: start: 19990101
  12. ATENOLOL [Concomitant]
     Indication: ATRIAL FIBRILLATION
     Route: 048
     Dates: start: 20110130

REACTIONS (7)
  - ACUTE HEPATIC FAILURE [None]
  - VOMITING [None]
  - COAGULOPATHY [None]
  - OFF LABEL USE [None]
  - CARDIAC FAILURE [None]
  - DRUG INTERACTION [None]
  - ASTHENIA [None]
